FAERS Safety Report 8551863-X (Version None)
Quarter: 2012Q3

REPORT INFORMATION
  Report Type: 
  Country: None (occurrence: None)
  Receive Date: 20120730
  Receipt Date: 20120711
  Transmission Date: 20120928
  Serious: Yes (Other)
  Sender: FDA-Public Use
  Company Number: CHPA2008US19209

PATIENT
  Age: 71 Year
  Sex: Female

DRUGS (2)
  1. MAALOX MS TOTAL STOMACH RELIEF [Suspect]
     Indication: ABDOMINAL DISCOMFORT
     Dosage: 3 TSP, QD
     Route: 048
     Dates: start: 20081001
  2. MAALOX ADVANCED REGULAR STRENGTH [Suspect]
     Indication: GASTROOESOPHAGEAL REFLUX DISEASE
     Dosage: UNK, AS NEEDED AS DIRECTED
     Route: 048
     Dates: start: 20060101

REACTIONS (5)
  - VOMITING [None]
  - SCIATICA [None]
  - IMPAIRED HEALING [None]
  - NAUSEA [None]
  - ERUCTATION [None]
